FAERS Safety Report 5814620-0 (Version None)
Quarter: 2008Q3

REPORT INFORMATION
  Report Type: 
  Country: None (occurrence: None)
  Receive Date: 20080718
  Receipt Date: 20070619
  Transmission Date: 20090109
  Serious: No
  Sender: FDA-Public Use
  Company Number: US-KINGPHARMUSA00001-K200700762

PATIENT

DRUGS (5)
  1. LEVOXYL [Suspect]
     Indication: AUTOIMMUNE THYROIDITIS
     Dosage: 25 MCG, QD
     Dates: start: 20070301, end: 20070101
  2. LEVOXYL [Suspect]
     Dosage: 50 MCG, QD
     Dates: start: 20070101, end: 20070101
  3. LEVOXYL [Suspect]
     Dosage: 75 MCG, QD
     Dates: start: 20070101, end: 20070101
  4. LEVOXYL [Suspect]
     Dosage: 88 MCG, QD
     Dates: start: 20070101, end: 20070101
  5. LEVOXYL [Suspect]
     Dosage: 100 MCG, QD
     Route: 048
     Dates: start: 20070101

REACTIONS (2)
  - BLOOD THYROID STIMULATING HORMONE INCREASED [None]
  - DRUG INEFFECTIVE [None]
